FAERS Safety Report 8052305-3 (Version None)
Quarter: 2012Q1

REPORT INFORMATION
  Report Type: 
  Country: None (occurrence: None)
  Receive Date: 20120118
  Receipt Date: 20120111
  Transmission Date: 20120608
  Serious: Yes (Hospitalization)
  Sender: FDA-Public Use
  Company Number: FR-JNJFOC-20120104068

PATIENT
  Age: 64 Year
  Sex: Male

DRUGS (6)
  1. RITONAVIR [Suspect]
     Indication: HIV INFECTION
     Route: 065
  2. DARUNAVIR ETHANOLATE [Suspect]
     Indication: HIV INFECTION
     Route: 065
  3. RITONAVIR [Suspect]
     Route: 065
  4. EMTRICITABINE/TENOFOVIR DISOPROXIL FUMARATE [Suspect]
     Indication: HIV INFECTION
     Dosage: 300/200MG
     Route: 065
  5. INDINIVIR SULFATE [Suspect]
     Indication: HIV INFECTION
     Route: 065
  6. ATAZANAVIR [Suspect]
     Indication: HIV INFECTION
     Route: 065

REACTIONS (1)
  - CHOLELITHIASIS [None]
